FAERS Safety Report 8998014 (Version 4)
Quarter: 2013Q3

REPORT INFORMATION
  Report Type: Spontaneous
  Country: US (occurrence: US)
  Receive Date: 20130104
  Receipt Date: 20130801
  Transmission Date: 20140515
  Serious: Yes (Hospitalization, Disabling, Other)
  Sender: FDA-Public Use
  Company Number: US-009507513-1301USA000368

PATIENT
  Sex: Female
  Weight: 104.31 kg

DRUGS (1)
  1. NUVARING [Suspect]
     Indication: CONTRACEPTION
     Dosage: UNK
     Route: 067
     Dates: start: 20060324, end: 201001

REACTIONS (15)
  - Loss of consciousness [Unknown]
  - Pulmonary embolism [Unknown]
  - Deep vein thrombosis [Unknown]
  - Pulmonary infarction [Unknown]
  - Hypertension [Unknown]
  - Type 2 diabetes mellitus [Unknown]
  - Pneumonia [Unknown]
  - Liver function test abnormal [Unknown]
  - Leukocytosis [Unknown]
  - Concussion [Unknown]
  - Dizziness [Unknown]
  - Syncope [Unknown]
  - Head injury [Unknown]
  - Night sweats [Unknown]
  - Migraine [Unknown]
